FAERS Safety Report 16141792 (Version 1)
Quarter: 2019Q1

REPORT INFORMATION
  Report Type: Spontaneous
  Country: US (occurrence: US)
  Receive Date: 20190329
  Receipt Date: 20190329
  Transmission Date: 20190418
  Serious: Yes (Life-Threatening, Hospitalization)
  Sender: FDA-Public Use
  Company Number: None

PATIENT
  Age: 47 Year
  Sex: Female
  Weight: 86.18 kg

DRUGS (1)
  1. HYDROMORPHONE [Suspect]
     Active Substance: HYDROMORPHONE
     Indication: BACK PAIN
     Route: 037
     Dates: start: 20181029, end: 20181130

REACTIONS (2)
  - Meningitis tuberculous [None]
  - Pancytopenia [None]

NARRATIVE: CASE EVENT DATE: 20181129
